FAERS Safety Report 9914082 (Version 1)
Quarter: 2014Q1

REPORT INFORMATION
  Report Type: Spontaneous
  Country: US (occurrence: None)
  Receive Date: 20140219
  Receipt Date: 20140219
  Transmission Date: 20141002
  Serious: Yes (Disabling, Other)
  Sender: FDA-Public Use
  Company Number: None

PATIENT
  Age: 53 Day
  Sex: Female
  Weight: 94.8 kg

DRUGS (1)
  1. ONFI [Suspect]
     Indication: EPILEPSY
     Dosage: 1 PILL  ONCE DAILY TAKEN BY MOUTH
     Route: 048
     Dates: start: 20121017, end: 20140217

REACTIONS (3)
  - Insomnia [None]
  - Chest pain [None]
  - Chromaturia [None]
